FAERS Safety Report 13234660 (Version 1)
Quarter: 2017Q1

REPORT INFORMATION
  Report Type: Spontaneous
  Country: None (occurrence: US)
  Receive Date: 20170214
  Receipt Date: 20170214
  Transmission Date: 20170428
  Serious: No
  Sender: FDA-Public Use
  Company Number: None

PATIENT
  Age: 44 Year
  Sex: Female
  Weight: 80.74 kg

DRUGS (2)
  1. FLUNISOLIDE. [Suspect]
     Active Substance: FLUNISOLIDE
  2. FLUTICASONE. [Suspect]
     Active Substance: FLUTICASONE

REACTIONS (1)
  - Therapy non-responder [None]
